FAERS Safety Report 24265829 (Version 1)
Quarter: 2024Q3

REPORT INFORMATION
  Report Type: Report from Study
  Country: CO (occurrence: CO)
  Receive Date: 20240830
  Receipt Date: 20240830
  Transmission Date: 20241017
  Serious: Yes (Hospitalization)
  Sender: ABBVIE
  Company Number: CO-JNJFOC-20240866245

PATIENT
  Age: 81 Year
  Sex: Female
  Weight: 67 kg

DRUGS (2)
  1. IMBRUVICA [Suspect]
     Active Substance: IBRUTINIB
     Indication: Chronic lymphocytic leukaemia
     Route: 048
     Dates: start: 20240806
  2. IMBRUVICA [Suspect]
     Active Substance: IBRUTINIB
     Indication: Chronic lymphocytic leukaemia
     Route: 048
     Dates: start: 202408

REACTIONS (5)
  - Urinary incontinence [Unknown]
  - Asthenia [Unknown]
  - Headache [Unknown]
  - Anal incontinence [Unknown]
  - Food aversion [Unknown]

NARRATIVE: CASE EVENT DATE: 20240821
